FAERS Safety Report 18608009 (Version 1)
Quarter: 2020Q4

REPORT INFORMATION
  Report Type: Other
  Country: CA (occurrence: CA)
  Receive Date: 20201211
  Receipt Date: 20201211
  Transmission Date: 20210114
  Serious: Yes (Disabling)
  Sender: FDA-Public Use
  Company Number: CA-CELLTRION INC.-2020CA033319

PATIENT

DRUGS (23)
  1. ENBREL [Suspect]
     Active Substance: ETANERCEPT
     Indication: POLYARTHRITIS
     Dosage: 15.0 MG, 1 EVERY 1 WEEK
     Route: 058
  2. HUMIRA [Suspect]
     Active Substance: ADALIMUMAB
     Dosage: 40.0 MG, 1 EVERY 2 WEEKS
     Route: 058
  3. HYDROXYCHLOROQUINE SULFATE. [Suspect]
     Active Substance: HYDROXYCHLOROQUINE SULFATE
     Indication: POLYARTHRITIS
     Route: 065
  4. LEFLUNOMIDE. [Suspect]
     Active Substance: LEFLUNOMIDE
     Indication: POLYARTHRITIS
     Route: 048
  5. PLAQUENIL [Suspect]
     Active Substance: HYDROXYCHLOROQUINE SULFATE
     Indication: POLYARTHRITIS
     Route: 065
  6. ADALIMUMAB [Suspect]
     Active Substance: ADALIMUMAB
     Indication: POLYARTHRITIS
     Route: 065
  7. ENBREL [Suspect]
     Active Substance: ETANERCEPT
     Dosage: 15.0 MG
     Route: 058
  8. INFLIXIMAB [Suspect]
     Active Substance: INFLIXIMAB
     Indication: POLYARTHRITIS
     Dosage: 200.0 MG,  1 EVERY 1 WEEK
     Route: 042
  9. ENBREL [Suspect]
     Active Substance: ETANERCEPT
     Indication: JUVENILE IDIOPATHIC ARTHRITIS
     Dosage: 15.0 MG, 1 EVERY 2 WEEK
     Route: 058
  10. ACTEMRA [Suspect]
     Active Substance: TOCILIZUMAB
     Indication: POLYARTHRITIS
     Route: 065
  11. ADALIMUMAB [Suspect]
     Active Substance: ADALIMUMAB
     Indication: JUVENILE IDIOPATHIC ARTHRITIS
     Dosage: 40.0 MG,  1 EVERY 1 WEEKS
     Route: 058
  12. HUMIRA [Suspect]
     Active Substance: ADALIMUMAB
     Indication: PRODUCT USED FOR UNKNOWN INDICATION
     Dosage: 40.0 MG, 1 EVERY 1 WEEKS
     Route: 058
  13. TOCILIZUMAB. [Suspect]
     Active Substance: TOCILIZUMAB
     Indication: POLYARTHRITIS
     Route: 042
  14. TOCILIZUMAB. [Suspect]
     Active Substance: TOCILIZUMAB
     Indication: JUVENILE IDIOPATHIC ARTHRITIS
  15. RITUXIMAB (UNKNOWN) [Suspect]
     Active Substance: RITUXIMAB
     Indication: JUVENILE IDIOPATHIC ARTHRITIS
     Dosage: 420.0 MG
     Route: 042
  16. METHOTREXATE. [Suspect]
     Active Substance: METHOTREXATE
     Dosage: UNK,  1 EVERY 1 WEEK
     Route: 058
  17. ORENCIA [Suspect]
     Active Substance: ABATACEPT
     Indication: POLYARTHRITIS
     Route: 065
  18. SULFASALAZINE. [Suspect]
     Active Substance: SULFASALAZINE
     Indication: POLYARTHRITIS
     Route: 065
  19. RITUXIMAB (UNKNOWN) [Suspect]
     Active Substance: RITUXIMAB
     Indication: POLYARTHRITIS
     Route: 065
  20. METHOTREXATE. [Suspect]
     Active Substance: METHOTREXATE
     Indication: POLYARTHRITIS
     Dosage: 15.0 MG/M2,  1 EVERY 1 WEEK
     Route: 058
  21. ORENCIA [Suspect]
     Active Substance: ABATACEPT
     Indication: JUVENILE IDIOPATHIC ARTHRITIS
  22. ETANERCEPT [Suspect]
     Active Substance: ETANERCEPT
     Indication: JUVENILE IDIOPATHIC ARTHRITIS
     Dosage: 15.0 MG, 1 EVERY 1 WEEKS
     Route: 058
  23. INFLIXIMAB [Suspect]
     Active Substance: INFLIXIMAB
     Indication: JUVENILE IDIOPATHIC ARTHRITIS
     Dosage: 200.0 MG,   1 EVERY 1 MONTH
     Route: 042

REACTIONS (33)
  - Mean cell haemoglobin decreased [Not Recovered/Not Resolved]
  - Red blood cell sedimentation rate abnormal [Not Recovered/Not Resolved]
  - Off label use [Not Recovered/Not Resolved]
  - Arthropathy [Not Recovered/Not Resolved]
  - Disability [Not Recovered/Not Resolved]
  - Musculoskeletal deformity [Not Recovered/Not Resolved]
  - Pain [Not Recovered/Not Resolved]
  - Intentional product use issue [Not Recovered/Not Resolved]
  - Arthritis [Not Recovered/Not Resolved]
  - Mean cell volume decreased [Not Recovered/Not Resolved]
  - Infusion related reaction [Not Recovered/Not Resolved]
  - Injection site reaction [Not Recovered/Not Resolved]
  - Drug ineffective [Not Recovered/Not Resolved]
  - Joint effusion [Not Recovered/Not Resolved]
  - Red blood cell sedimentation rate increased [Not Recovered/Not Resolved]
  - Red cell distribution width decreased [Not Recovered/Not Resolved]
  - Osteoarthritis [Not Recovered/Not Resolved]
  - Joint destruction [Not Recovered/Not Resolved]
  - Mean platelet volume decreased [Not Recovered/Not Resolved]
  - Physical disability [Not Recovered/Not Resolved]
  - White blood cell count increased [Not Recovered/Not Resolved]
  - Rheumatoid arthritis [Not Recovered/Not Resolved]
  - Product use issue [Not Recovered/Not Resolved]
  - Juvenile idiopathic arthritis [Not Recovered/Not Resolved]
  - Monocyte count increased [Not Recovered/Not Resolved]
  - Platelet count increased [Not Recovered/Not Resolved]
  - Vascular access complication [Not Recovered/Not Resolved]
  - Treatment failure [Not Recovered/Not Resolved]
  - C-reactive protein increased [Not Recovered/Not Resolved]
  - Deformity [Not Recovered/Not Resolved]
  - General physical health deterioration [Not Recovered/Not Resolved]
  - Red cell distribution width increased [Not Recovered/Not Resolved]
  - Infusion site reaction [Not Recovered/Not Resolved]
